FAERS Safety Report 21333039 (Version 1)
Quarter: 2022Q3

REPORT INFORMATION
  Report Type: Spontaneous
  Country: US (occurrence: US)
  Receive Date: 20220914
  Receipt Date: 20220914
  Transmission Date: 20221026
  Serious: Yes (Hospitalization)
  Sender: FDA-Public Use
  Company Number: US-GLAXOSMITHKLINE-US2022129985

PATIENT

DRUGS (1)
  1. ADVAIR DISKUS [Suspect]
     Active Substance: FLUTICASONE PROPIONATE\SALMETEROL XINAFOATE
     Indication: Asthma
     Dosage: UNK UNK, QD, 250/50 PWD 60; DAILY
     Route: 055
     Dates: start: 20020801

REACTIONS (2)
  - Road traffic accident [Recovered/Resolved]
  - Pain management [Recovered/Resolved]

NARRATIVE: CASE EVENT DATE: 20220801
